FAERS Safety Report 4500791-5 (Version None)
Quarter: 2004Q4

REPORT INFORMATION
  Report Type: 
  Country: None (occurrence: None)
  Receive Date: 20041115
  Receipt Date: 20041103
  Transmission Date: 20050328
  Serious: Yes (Death)
  Sender: FDA-Public Use
  Company Number: FRWYE173203NOV04

PATIENT
  Age: 72 Year
  Sex: Female

DRUGS (2)
  1. ENBREL [Suspect]
     Indication: RHEUMATOID ARTHRITIS
     Dosage: NOT SPECIFIED
     Route: 058
     Dates: start: 20010611, end: 20040821
  2. CORTICOSTEROID NOS [Suspect]
     Indication: MONARTHRITIS
     Route: 048
     Dates: start: 20040825

REACTIONS (5)
  - ABDOMINAL PAIN [None]
  - DIVERTICULAR PERFORATION [None]
  - DRUG INEFFECTIVE [None]
  - MONARTHRITIS [None]
  - PERITONITIS [None]
